FAERS Safety Report 10182124 (Version 5)
Quarter: 2014Q2

REPORT INFORMATION
  Report Type: Spontaneous
  Country: JP (occurrence: JP)
  Receive Date: 20140520
  Receipt Date: 20140624
  Transmission Date: 20141212
  Serious: Yes (Life-Threatening, Hospitalization, Other)
  Sender: FDA-Public Use
  Company Number: JP-ROCHE-1402085

PATIENT
  Age: 34 Year
  Sex: Female
  Weight: 53 kg

DRUGS (6)
  1. XOLAIR [Suspect]
     Indication: ASTHMA
     Route: 058
     Dates: start: 20140509, end: 20140509
  2. ONON [Concomitant]
     Route: 065
     Dates: start: 20121219
  3. SYMBICORT [Concomitant]
     Route: 065
     Dates: start: 20121206
  4. ALLELOCK [Concomitant]
     Route: 065
     Dates: start: 20121219
  5. LYRICA [Concomitant]
     Route: 065
     Dates: start: 20130903
  6. SPIRIVA [Concomitant]
     Route: 065
     Dates: start: 20130212

REACTIONS (15)
  - Convulsion [Recovered/Resolved]
  - Suicidal ideation [Unknown]
  - Personality disorder [Unknown]
  - Injection site pain [Unknown]
  - White blood cell count increased [Unknown]
  - Neutrophil count increased [Unknown]
  - Lymphocyte count decreased [Unknown]
  - Aspartate aminotransferase decreased [Recovered/Resolved]
  - Blood glucose increased [Unknown]
  - Blood creatine phosphokinase decreased [Unknown]
  - Blood immunoglobulin E increased [Unknown]
  - Pruritus [Unknown]
  - Anxiety [Unknown]
  - Blood bilirubin increased [Unknown]
  - Dizziness [Unknown]
